FAERS Safety Report 6018247-X (Version None)
Quarter: 2008Q4

REPORT INFORMATION
  Report Type: 
  Country: None (occurrence: None)
  Receive Date: 20081223
  Receipt Date: 20081218
  Transmission Date: 20090506
  Serious: Yes (Other)
  Sender: FDA-Public Use
  Company Number: US-ELI_LILLY_AND_COMPANY-US200812004702

PATIENT
  Sex: Male

DRUGS (3)
  1. HUMULIN R [Suspect]
     Indication: DIABETES MELLITUS
     Dosage: UNK, 3/D
     Dates: start: 19880101
  2. LANTUS [Concomitant]
     Indication: DIABETES MELLITUS
     Dosage: 65 U, EACH EVENING
  3. PROZAC [Concomitant]
     Indication: BACK PAIN
     Dosage: 10 MG, DAILY (1/D)

REACTIONS (6)
  - ANXIETY [None]
  - BLADDER CANCER [None]
  - BLOOD GLUCOSE DECREASED [None]
  - BLOOD UREA INCREASED [None]
  - PROSTATE CANCER [None]
  - SLEEP DISORDER [None]
